FAERS Safety Report 17511677 (Version 1)
Quarter: 2020Q1

REPORT INFORMATION
  Report Type: Spontaneous
  Country: FR (occurrence: FR)
  Receive Date: 20200306
  Receipt Date: 20200306
  Transmission Date: 20200409
  Serious: Yes (Hospitalization)
  Sender: FDA-Public Use
  Company Number: FR-MYLANLABS-2020M1023108

PATIENT
  Age: 84 Year
  Sex: Female

DRUGS (8)
  1. SPIRONOLACTONE. [Suspect]
     Active Substance: SPIRONOLACTONE
     Indication: ATRIOVENTRICULAR BLOCK
     Dosage: 25 MILLIGRAM, QD
     Route: 048
     Dates: end: 20191231
  2. BISOPROLOL [Suspect]
     Active Substance: BISOPROLOL
     Indication: ATRIOVENTRICULAR BLOCK
     Dosage: 10 MILLIGRAM, QD
     Route: 048
     Dates: end: 20191231
  3. PANTOPRAZOLE [Concomitant]
     Active Substance: PANTOPRAZOLE
     Dosage: 40 MILLIGRAM, QD
     Route: 048
     Dates: end: 20191231
  4. RAMIPRIL. [Suspect]
     Active Substance: RAMIPRIL
     Indication: CARDIAC ASSISTANCE DEVICE USER
     Dosage: 5 MILLIGRAM, QD
     Route: 048
     Dates: end: 20191231
  5. KALEORID [Concomitant]
     Active Substance: POTASSIUM CHLORIDE
     Dosage: INCONNUE
     Route: 048
     Dates: end: 20191231
  6. SERESTA [Concomitant]
     Active Substance: OXAZEPAM
     Dosage: 1 DOSAGE FORM, QD
     Route: 048
     Dates: end: 20191231
  7. FUROSEMIDE. [Suspect]
     Active Substance: FUROSEMIDE
     Indication: ATRIOVENTRICULAR BLOCK
     Dosage: 80 MILLIGRAM, QD
     Route: 048
     Dates: end: 20191201
  8. ATORVASTATINE                      /01326101/ [Concomitant]
     Active Substance: ATORVASTATIN
     Indication: ATRIOVENTRICULAR BLOCK
     Dosage: 20 MILLIGRAM, QD
     Route: 048

REACTIONS (2)
  - Hypovolaemic shock [Recovered/Resolved]
  - Acute kidney injury [Recovering/Resolving]

NARRATIVE: CASE EVENT DATE: 20191231
